FAERS Safety Report 4283327-6 (Version None)
Quarter: 2004Q1

REPORT INFORMATION
  Report Type: 
  Country: None (occurrence: None)
  Receive Date: 20040122
  Receipt Date: 20040108
  Transmission Date: 20041129
  Serious: Yes (Hospitalization)
  Sender: FDA-Public Use
  Company Number: 601054

PATIENT
  Age: 74 Year
  Sex: Female
  Weight: 85.2762 kg

DRUGS (7)
  1. POLYGAM S/D [Suspect]
     Indication: IMMUNODEFICIENCY COMMON VARIABLE
     Dosage: 30 GM; QM; INTRAVENOUS
     Route: 042
     Dates: start: 20031229, end: 20031229
  2. ALLOPURINOL [Concomitant]
  3. BEXTRA [Concomitant]
  4. PRILOSEC [Concomitant]
  5. FUROSEMIDE [Concomitant]
  6. ALBUTEROL [Concomitant]
  7. PREMARIN [Concomitant]

REACTIONS (7)
  - BLOOD PRESSURE INCREASED [None]
  - CARDIAC ENZYMES INCREASED [None]
  - CHEST DISCOMFORT [None]
  - CORONARY ARTERY OCCLUSION [None]
  - DRY THROAT [None]
  - HEADACHE [None]
  - PAIN IN EXTREMITY [None]
